FAERS Safety Report 5936297-6 (Version None)
Quarter: 2008Q4

REPORT INFORMATION
  Report Type: 
  Country: None (occurrence: None)
  Receive Date: 20081030
  Receipt Date: 20080428
  Transmission Date: 20090506
  Serious: Yes (Other)
  Sender: FDA-Public Use
  Company Number: US-AVENTIS-200812715US

PATIENT
  Sex: Female

DRUGS (1)
  1. LOVENOX [Suspect]
     Indication: MIGRAINE
     Dosage: DOSE: UNK
     Dates: start: 20060901

REACTIONS (3)
  - ADVERSE EVENT [None]
  - CATHETER THROMBOSIS [None]
  - CORONARY ARTERY STENOSIS [None]
